FAERS Safety Report 12092245 (Version 1)
Quarter: 2016Q1

REPORT INFORMATION
  Report Type: Spontaneous
  Country: US (occurrence: US)
  Receive Date: 20160219
  Receipt Date: 20160219
  Transmission Date: 20160526
  Serious: No
  Sender: FDA-Public Use
  Company Number: US-ALLERGAN-1511955US

PATIENT
  Age: 68 Year
  Sex: Female
  Weight: 70.3 kg

DRUGS (2)
  1. FML [Suspect]
     Active Substance: FLUOROMETHOLONE
     Indication: MACULAR HOLE
  2. FML [Suspect]
     Active Substance: FLUOROMETHOLONE
     Indication: INTRAOCULAR PRESSURE TEST ABNORMAL
     Dosage: 1 GTT, QHS
     Route: 047

REACTIONS (2)
  - Off label use [Unknown]
  - Eye irritation [Recovered/Resolved]

NARRATIVE: CASE EVENT DATE: 201506
